FAERS Safety Report 25007829 (Version 1)
Quarter: 2025Q1

REPORT INFORMATION
  Report Type: Spontaneous
  Country: US (occurrence: None)
  Receive Date: 20250225
  Receipt Date: 20250225
  Transmission Date: 20250409
  Serious: No
  Sender: ENCUBE ETHICALS
  Company Number: US-Encube-001660

PATIENT
  Age: 77 Year
  Sex: Female

DRUGS (1)
  1. TRIAMCINOLONE ACETONIDE [Suspect]
     Active Substance: TRIAMCINOLONE ACETONIDE
     Indication: Hyperhidrosis
     Dates: start: 20250205, end: 202502

REACTIONS (3)
  - Application site pain [Not Recovered/Not Resolved]
  - Application site rash [Unknown]
  - Off label use [Unknown]

NARRATIVE: CASE EVENT DATE: 20250201
